FAERS Safety Report 7609382-0 (Version None)
Quarter: 2011Q3

REPORT INFORMATION
  Report Type: 
  Country: None (occurrence: None)
  Receive Date: 20110714
  Receipt Date: 20110706
  Transmission Date: 20111222
  Serious: Yes (Disabling, Other)
  Sender: FDA-Public Use
  Company Number: PHEH2009US16955

PATIENT
  Sex: Male

DRUGS (68)
  1. AVAPRO [Concomitant]
     Dosage: 150 MG, UNK
  2. ADVANTAGE [Concomitant]
  3. NEUPOGEN [Concomitant]
  4. CYCLOBENAZPRINE [Concomitant]
  5. PHENAZOPYRIDINE HCL TAB [Concomitant]
  6. HYDROMORPHONE HCL [Concomitant]
  7. LORAZEPAM [Concomitant]
  8. METRONIDAZOLE [Concomitant]
  9. AUGMENTIN '125' [Concomitant]
  10. SERTRALINE [Concomitant]
  11. CLINDAMYCIN [Concomitant]
     Dosage: 150 MG, UNK
  12. CHLORHEXIDINE GLUCONATE [Concomitant]
  13. LANTUS [Concomitant]
  14. OXYCOD [Concomitant]
  15. GLUCOTROL [Concomitant]
  16. ZYRTEC [Concomitant]
  17. LEVAQUIN [Concomitant]
  18. TUSSIONEX [Concomitant]
  19. ARANESP [Concomitant]
  20. TARCEVA [Concomitant]
  21. PREDNISOLONE ACETATE [Concomitant]
  22. FINASTERIDE [Concomitant]
  23. PENICILLIN VK [Concomitant]
     Dosage: 500 MG, UNK
  24. LIDOCAINE [Concomitant]
  25. CARISOPRODOL [Concomitant]
     Dosage: 350 MG, UNK
  26. ACTOS [Concomitant]
  27. HYDROCODONE [Concomitant]
  28. QUINAPRIL HCL [Concomitant]
  29. CEPHALEXIN [Concomitant]
  30. INSULIN [Concomitant]
  31. ACCUPRIL [Concomitant]
  32. BENZONATATE [Concomitant]
  33. GUAIFED-PD [Concomitant]
  34. DUONEB [Concomitant]
  35. ZETIA [Concomitant]
  36. VALTREX [Concomitant]
  37. FLUCONAZOLE [Concomitant]
  38. DURAGESIC-100 [Concomitant]
  39. MUPIROCIN [Concomitant]
  40. ZOMETA [Suspect]
     Dosage: UNK
  41. FOLIC ACID [Concomitant]
     Dosage: 1 MG, UNK
  42. ALPRAZOLAM [Concomitant]
     Dosage: 0.5 MG, UNK
  43. NOVOBIOCIN [Concomitant]
  44. NASONEX [Concomitant]
  45. PROTONIX [Concomitant]
  46. PROCHLORPERAZINE TAB [Concomitant]
  47. VYTORIN [Concomitant]
  48. NEXIUM [Concomitant]
  49. ATROP [Concomitant]
     Dosage: 2.5 MG, UNK
  50. POTASSIUM CHLORIDE [Concomitant]
     Dosage: 10 MEQ, UNK
  51. ZOVIRAX [Concomitant]
  52. HUMIBID [Concomitant]
  53. ZITHROMAX [Concomitant]
  54. AZMACORT [Concomitant]
  55. LOPROX [Concomitant]
  56. SIMVASTATIN [Concomitant]
  57. DEXAMETHASONE [Concomitant]
     Dosage: 4 MG, UNK
  58. FUROSEMIDE [Concomitant]
     Dosage: 40 MG, UNK
  59. FLOMAX [Concomitant]
  60. LIPITOR [Concomitant]
  61. PROMETHAZINE W/ CODEINE [Concomitant]
  62. FAMVIR [Concomitant]
  63. DOXYCYCLA [Concomitant]
  64. CIPROFLOXACIN [Concomitant]
  65. ATACAND [Concomitant]
  66. NAPROXEN [Concomitant]
  67. METOPROLOL TARTRATE [Concomitant]
  68. ONDANSETRON [Concomitant]

REACTIONS (5)
  - OSTEONECROSIS OF JAW [None]
  - ANXIETY [None]
  - ANHEDONIA [None]
  - PAIN [None]
  - INJURY [None]
